FAERS Safety Report 10053396 (Version 2)
Quarter: 2014Q2

REPORT INFORMATION
  Report Type: Spontaneous
  Country: US (occurrence: US)
  Receive Date: 20140402
  Receipt Date: 20140526
  Transmission Date: 20141212
  Serious: No
  Sender: FDA-Public Use
  Company Number: US-PFIZER INC-2014089022

PATIENT
  Age: 54 Year
  Sex: Female
  Weight: 65.76 kg

DRUGS (3)
  1. GENOTROPIN MQ [Suspect]
     Indication: HYPOPITUITARISM
     Dosage: 0.8 MG, 1X/DAY
     Route: 058
     Dates: start: 201402
  2. SYNTHROID [Concomitant]
     Dosage: 150 UG, UNK
  3. PREMARIN [Concomitant]
     Dosage: UNK

REACTIONS (2)
  - Somnolence [Unknown]
  - Respiratory disorder [Unknown]
